FAERS Safety Report 7564338-1 (Version None)
Quarter: 2011Q2

REPORT INFORMATION
  Report Type: 
  Country: None (occurrence: None)
  Receive Date: 20110622
  Receipt Date: 20110609
  Transmission Date: 20111010
  Serious: Yes (Hospitalization)
  Sender: FDA-Public Use
  Company Number: PHHY2011JP51376

PATIENT
  Sex: Male
  Weight: 28 kg

DRUGS (8)
  1. EXJADE [Suspect]
     Dosage: 250 MG, DAILY
     Route: 048
     Dates: start: 20080814, end: 20080814
  2. ALFAROL [Concomitant]
     Indication: THALASSAEMIA BETA
     Dosage: 3 ML, UNK
     Route: 048
  3. EXJADE [Suspect]
     Indication: IRON OVERLOAD
     Dosage: 166 MG, DAILY
     Route: 048
     Dates: start: 20080812, end: 20080813
  4. EXJADE [Suspect]
     Dosage: 500 MG, DAILY
     Dates: start: 20080815, end: 20091014
  5. DESFERAL [Concomitant]
     Indication: IRON OVERLOAD
     Route: 030
  6. FOLIC ACID [Concomitant]
     Indication: THALASSAEMIA BETA
     Dosage: 10 MG, UNK
     Route: 048
  7. METHYCOBAL [Concomitant]
     Indication: THALASSAEMIA BETA
     Dosage: 250 UG, UNK
     Route: 048
  8. OSELTAMIVIR PHOSPHATE [Concomitant]

REACTIONS (3)
  - INFLUENZA [None]
  - RENAL FAILURE ACUTE [None]
  - LIVER DISORDER [None]
